FAERS Safety Report 5844113-6 (Version None)
Quarter: 2008Q3

REPORT INFORMATION
  Report Type: 
  Country: None (occurrence: None)
  Receive Date: 20080813
  Receipt Date: 20080801
  Transmission Date: 20090109
  Serious: Yes (Hospitalization)
  Sender: FDA-Public Use
  Company Number: FR-ABBOTT-08P-056-0468728-00

PATIENT
  Sex: Male

DRUGS (1)
  1. ENANTONE LP 3.75 MG PREP INJ [Suspect]
     Indication: PROSTATE CANCER
     Dates: start: 20061201, end: 20070501

REACTIONS (3)
  - DYSPNOEA [None]
  - PULMONARY FIBROSIS [None]
  - RESPIRATORY DISORDER [None]
